FAERS Safety Report 17633349 (Version 4)
Quarter: 2022Q4

REPORT INFORMATION
  Report Type: Other
  Country: CA (occurrence: CA)
  Receive Date: 20200406
  Receipt Date: 20221028
  Transmission Date: 20230113
  Serious: Yes (Hospitalization, Other)
  Sender: FDA-Public Use
  Company Number: CA-TITAN PHARMACEUTICALS-2020TAN00015

PATIENT
  Sex: Male
  Weight: 2 kg

DRUGS (13)
  1. BUPRENORPHINE [Suspect]
     Active Substance: BUPRENORPHINE
     Indication: Drug dependence, postpartum
     Dosage: 16 MG, 1X/DAY
     Route: 063
  2. BUPRENORPHINE [Suspect]
     Active Substance: BUPRENORPHINE
     Indication: Drug dependence, postpartum
     Dosage: 22 MG, 1X/DAY
     Route: 063
  3. BUPRENORPHINE [Suspect]
     Active Substance: BUPRENORPHINE
     Indication: Drug dependence, postpartum
     Dosage: 16 MG, 1X/DAY
     Route: 064
  4. BUPRENORPHINE HYDROCHLORIDE [Suspect]
     Active Substance: BUPRENORPHINE HYDROCHLORIDE
     Indication: Drug dependence, postpartum
     Dosage: 16 MG, 1X/DAY
     Route: 063
  5. BUPRENORPHINE HYDROCHLORIDE [Suspect]
     Active Substance: BUPRENORPHINE HYDROCHLORIDE
     Indication: Drug dependence, postpartum
     Dosage: 22 MG, 1X/DAY
     Route: 063
  6. BUPRENORPHINE HYDROCHLORIDE [Suspect]
     Active Substance: BUPRENORPHINE HYDROCHLORIDE
     Indication: Drug dependence, postpartum
     Dosage: 16 MG, 1X/DAY
     Route: 064
  7. ABILIFY [Suspect]
     Active Substance: ARIPIPRAZOLE
     Indication: Product used for unknown indication
     Dosage: 5.0 MG, 1X/DAY
     Route: 064
  8. BUPRENORPHINE\NALOXONE [Suspect]
     Active Substance: BUPRENORPHINE\NALOXONE
     Indication: Product used for unknown indication
     Dosage: UNK
     Route: 063
  9. BUPRENORPHINE\NALOXONE [Suspect]
     Active Substance: BUPRENORPHINE\NALOXONE
     Indication: Product used for unknown indication
     Dosage: UNK
  10. DIAZEPAM [Suspect]
     Active Substance: DIAZEPAM
     Indication: Product used for unknown indication
     Dosage: 40 MG, 1X/DAY
     Route: 064
  11. NICOTINE [Suspect]
     Active Substance: NICOTINE
     Indication: Smoking cessation therapy
     Dosage: UNK
     Route: 064
  12. NICOTINE [Suspect]
     Active Substance: NICOTINE
     Indication: Smoking cessation therapy
     Dosage: UNK
     Route: 063
  13. VYVANSE [Suspect]
     Active Substance: LISDEXAMFETAMINE DIMESYLATE
     Indication: Product used for unknown indication
     Dosage: 10 MG, 1X/DAY
     Route: 064

REACTIONS (7)
  - Breech presentation [Recovered/Resolved]
  - Foetal distress syndrome [Recovered/Resolved]
  - Foetal exposure during pregnancy [Recovered/Resolved]
  - Jaundice neonatal [Recovered/Resolved]
  - Premature baby [Recovered/Resolved]
  - Drug withdrawal syndrome neonatal [Recovered/Resolved]
  - Exposure via breast milk [Recovered/Resolved]
